FAERS Safety Report 16097977 (Version 2)
Quarter: 2019Q2

REPORT INFORMATION
  Report Type: Spontaneous
  Country: FR (occurrence: FR)
  Receive Date: 20190320
  Receipt Date: 20190411
  Transmission Date: 20190711
  Serious: Yes (Other)
  Sender: FDA-Public Use
  Company Number: PHHY2019FR061382

PATIENT
  Sex: Male
  Weight: 70 kg

DRUGS (2)
  1. FLAGYL [Concomitant]
     Active Substance: METRONIDAZOLE\METRONIDAZOLE HYDROCHLORIDE
     Indication: ANTIBIOTIC THERAPY
     Dosage: 500 MG, Q8H
     Route: 048
     Dates: start: 20180222, end: 20180304
  2. TACROLIMUS. [Suspect]
     Active Substance: TACROLIMUS
     Indication: RENAL TRANSPLANT
     Dosage: 4 MG, QD
     Route: 048
     Dates: start: 20171107

REACTIONS (3)
  - Parasite stool test positive [Recovered/Resolved]
  - Blastocystis infection [Recovered/Resolved]
  - Eosinophilia [Recovered/Resolved]

NARRATIVE: CASE EVENT DATE: 201802
